FAERS Safety Report 23491638 (Version 9)
Quarter: 2024Q3

REPORT INFORMATION
  Report Type: Spontaneous
  Country: CA (occurrence: CA)
  Receive Date: 20240207
  Receipt Date: 20240724
  Transmission Date: 20241017
  Serious: Yes (Hospitalization, Other)
  Sender: CELLTRION
  Company Number: CA-CELLTRION INC.-2023CA010680

PATIENT

DRUGS (19)
  1. INFLECTRA [Suspect]
     Active Substance: INFLIXIMAB-DYYB
     Indication: Crohn^s disease
     Dosage: 10 MG/KG, INDUCTION WEEK 0, 2, 6 THEN MAINTENANCE EVERY 8 WEEKS
     Route: 042
     Dates: start: 20230531
  2. INFLECTRA [Suspect]
     Active Substance: INFLIXIMAB-DYYB
     Dosage: 10 MG/KG (690 MG), AFTER 2 WEEKS
     Route: 042
     Dates: start: 20230612
  3. INFLECTRA [Suspect]
     Active Substance: INFLIXIMAB-DYYB
     Dosage: 10 MG/KG (690 MG), WEEK 6 DOSE
     Route: 042
     Dates: start: 20230712
  4. INFLECTRA [Suspect]
     Active Substance: INFLIXIMAB-DYYB
     Dosage: 10 MG/KG (690 MG), AFTER 8 WEEKS
     Route: 042
     Dates: start: 20230906
  5. INFLECTRA [Suspect]
     Active Substance: INFLIXIMAB-DYYB
     Dosage: 10 MG/KG (700 MG), EVERY 4 WEEKS
     Route: 042
     Dates: start: 20231012
  6. INFLECTRA [Suspect]
     Active Substance: INFLIXIMAB-DYYB
     Dosage: 10 MG/KG (700 MG), AFTER 3 WEEKS AND 5 DAYS
     Route: 042
     Dates: start: 20231107
  7. INFLECTRA [Suspect]
     Active Substance: INFLIXIMAB-DYYB
     Dosage: 10 MG/KG (690 MG), EVERY 4 WEEKS
     Route: 042
     Dates: start: 20231207
  8. INFLECTRA [Suspect]
     Active Substance: INFLIXIMAB-DYYB
     Dosage: 10 MG/KG (690 MG), EVERY 4 WEEKS
     Route: 042
     Dates: start: 20240105
  9. INFLECTRA [Suspect]
     Active Substance: INFLIXIMAB-DYYB
     Dosage: 10 MG/KG (690 MG), AFTER 3 WEEKS AND 3 DAYS
     Route: 042
     Dates: start: 20240129
  10. INFLECTRA [Suspect]
     Active Substance: INFLIXIMAB-DYYB
     Dosage: 10 MG/KG (690 MG), AFTER 3 WEEKS AND 3 DAYS
     Route: 042
     Dates: start: 20240129
  11. INFLECTRA [Suspect]
     Active Substance: INFLIXIMAB-DYYB
     Dosage: 10 MG/KG, EVERY 4 WEEKS
     Route: 042
     Dates: start: 202402
  12. INFLECTRA [Suspect]
     Active Substance: INFLIXIMAB-DYYB
     Dosage: 10 MG/KG, EVERY 4 WEEKS
     Route: 042
     Dates: start: 20240226
  13. INFLECTRA [Suspect]
     Active Substance: INFLIXIMAB-DYYB
     Dosage: 10 MG/KG (700 MG), EVERY 4 WEEKS
     Route: 042
     Dates: start: 20240325
  14. INFLECTRA [Suspect]
     Active Substance: INFLIXIMAB-DYYB
     Dosage: 10 MG/KG (700 MG), EVERY 4 WEEKS
     Route: 042
     Dates: start: 20240521
  15. INFLECTRA [Suspect]
     Active Substance: INFLIXIMAB-DYYB
     Dosage: 10 MG/KG (700 MG), EVERY 4 WEEKS
     Route: 042
     Dates: start: 20240521
  16. INFLECTRA [Suspect]
     Active Substance: INFLIXIMAB-DYYB
     Dosage: 10 MG/KG (740 MG), AFTER 3 WEEKS (EVERY 4 WEEKS)
     Route: 042
     Dates: start: 20240617
  17. INFLECTRA [Suspect]
     Active Substance: INFLIXIMAB-DYYB
     Dosage: 10 MG/KG (740 MG), EVERY 4 WEEKS
     Route: 042
     Dates: start: 20240715
  18. IMURAN [Concomitant]
     Active Substance: AZATHIOPRINE
     Dosage: 1 DF
     Dates: start: 20230517
  19. IMURAN [Concomitant]
     Active Substance: AZATHIOPRINE
     Dosage: UNK, INCREASE AZATHIOPRINE DOSAGE

REACTIONS (10)
  - Condition aggravated [Recovered/Resolved]
  - Intestinal obstruction [Recovering/Resolving]
  - Accident at work [Not Recovered/Not Resolved]
  - Tendon rupture [Not Recovered/Not Resolved]
  - Drug level below therapeutic [Not Recovered/Not Resolved]
  - Arthralgia [Recovered/Resolved]
  - Off label use [Unknown]
  - Off label use [Unknown]
  - Off label use [Unknown]
  - Intentional product use issue [Unknown]

NARRATIVE: CASE EVENT DATE: 20230101
